FAERS Safety Report 11177114 (Version 4)
Quarter: 2018Q1

REPORT INFORMATION
  Report Type: Spontaneous
  Country: None (occurrence: US)
  Receive Date: 20150610
  Receipt Date: 20180316
  Transmission Date: 20180508
  Serious: Yes (Hospitalization)
  Sender: FDA-Public Use
  Company Number: US-ENDO PHARMACEUTICALS INC.-201503123

PATIENT
  Age: 63 Year
  Sex: Male
  Weight: 88.44 kg

DRUGS (2)
  1. TESTIM [Suspect]
     Active Substance: TESTOSTERONE
     Dosage: 50 MG, UNKNOWN
     Route: 062
     Dates: start: 201301, end: 201308
  2. TESTIM [Suspect]
     Active Substance: TESTOSTERONE
     Indication: ANDROGEN REPLACEMENT THERAPY
     Dosage: 50 MG, UNKNOWN
     Route: 062
     Dates: start: 201311, end: 201408

REACTIONS (3)
  - Arthropathy [Unknown]
  - Pulmonary embolism [Unknown]
  - Deep vein thrombosis [Unknown]

NARRATIVE: CASE EVENT DATE: 20140113
